FAERS Safety Report 8449958-4 (Version None)
Quarter: 2012Q2

REPORT INFORMATION
  Report Type: 
  Country: None (occurrence: None)
  Receive Date: 20120620
  Receipt Date: 20120615
  Transmission Date: 20120825
  Serious: Yes (Hospitalization)
  Sender: FDA-Public Use
  Company Number: PHHY2012BR052204

PATIENT
  Age: 30 Year
  Sex: Female

DRUGS (6)
  1. FLUOXETINE [Concomitant]
  2. CALCIUM CARBONATE [Concomitant]
  3. VITAMIN D [Concomitant]
  4. NEORAL [Suspect]
     Indication: PEMPHIGUS
     Dosage: 1ML AT 6AM AND 1ML AT 6PM
  5. DEXAMETHASONE [Concomitant]
  6. CLONAZEPAM [Concomitant]

REACTIONS (2)
  - ABDOMINAL PAIN UPPER [None]
  - THROMBOSIS [None]
